FAERS Safety Report 5502387-5 (Version None)
Quarter: 2007Q4

REPORT INFORMATION
  Report Type: 
  Country: None (occurrence: None)
  Receive Date: 20071030
  Receipt Date: 20071018
  Transmission Date: 20080405
  Serious: Yes (Hospitalization, Other)
  Sender: FDA-Public Use
  Company Number: JP-PFIZER INC-2007042096

PATIENT
  Sex: Female

DRUGS (13)
  1. GABAPEN [Suspect]
     Indication: EPILEPSY
     Route: 048
     Dates: start: 20070508, end: 20070509
  2. MESTINON [Concomitant]
  3. BIOFERMIN R [Concomitant]
     Dates: start: 20070209
  4. DIAMOX [Concomitant]
     Dates: start: 20070209
  5. HYSERENIN [Concomitant]
     Dates: start: 20070222
  6. EXCEGRAN [Concomitant]
     Dates: start: 20070303
  7. LANSOPRAZOLE [Concomitant]
     Dates: start: 20070209
  8. ATROPINE SULFATE [Concomitant]
     Dates: start: 20070506
  9. AMINOFLUID [Concomitant]
     Route: 042
     Dates: start: 20070507
  10. LACTEC [Concomitant]
     Route: 042
     Dates: start: 20070507
  11. MODACIN [Concomitant]
     Route: 042
     Dates: start: 20070508, end: 20070509
  12. DALACIN-S [Concomitant]
     Route: 042
     Dates: start: 20070508, end: 20070509
  13. PENTCILLIN [Concomitant]
     Route: 042
     Dates: start: 20070501, end: 20070508

REACTIONS (4)
  - ALTERED STATE OF CONSCIOUSNESS [None]
  - INFLAMMATION [None]
  - MIOSIS [None]
  - URINE OUTPUT DECREASED [None]
